FAERS Safety Report 15825005 (Version 1)
Quarter: 2019Q1

REPORT INFORMATION
  Report Type: Spontaneous
  Country: ES (occurrence: ES)
  Receive Date: 20190115
  Receipt Date: 20190115
  Transmission Date: 20190417
  Serious: Yes (Other)
  Sender: FDA-Public Use
  Company Number: ES-RICON PHARMA, LLC-RIC201901-000016

PATIENT
  Age: 82 Year
  Sex: Female

DRUGS (3)
  1. CYCLOSPORINE. [Concomitant]
     Active Substance: CYCLOSPORINE
     Route: 061
  2. DICLOFENAC SODIUM. [Suspect]
     Active Substance: DICLOFENAC SODIUM
     Route: 061
  3. TOBRAMYCIN. [Concomitant]
     Active Substance: TOBRAMYCIN

REACTIONS (6)
  - Conjunctival hyperaemia [Recovering/Resolving]
  - Toxicity to various agents [Unknown]
  - Corneal thinning [Not Recovered/Not Resolved]
  - Ulcerative keratitis [Recovering/Resolving]
  - Eye pain [Unknown]
  - Vision blurred [Unknown]
